FAERS Safety Report 5695564-4 (Version None)
Quarter: 2008Q2

REPORT INFORMATION
  Report Type: 
  Country: None (occurrence: None)
  Receive Date: 20080407
  Receipt Date: 20080326
  Transmission Date: 20081010
  Serious: Yes (Death)
  Sender: FDA-Public Use
  Company Number: US-JNJFOC-20080305331

PATIENT
  Age: 51 Year
  Sex: Female
  Weight: 110.68 kg

DRUGS (6)
  1. INVEGA [Suspect]
     Indication: SCHIZOAFFECTIVE DISORDER
     Route: 048
  2. ZOLOFT [Concomitant]
     Indication: DEPRESSION
     Route: 048
  3. ZANTAC [Concomitant]
     Route: 048
  4. LISINOPRIL [Concomitant]
     Indication: HYPERTENSION
     Route: 048
  5. TRIAMTERENE AND HYDROCHLOROTHIAZIDE [Concomitant]
     Indication: HYPERTENSION
     Route: 048
  6. COREG [Concomitant]
     Route: 048

REACTIONS (3)
  - CARDIAC ARREST [None]
  - EXPIRED DRUG ADMINISTERED [None]
  - PULMONARY EMBOLISM [None]
